FAERS Safety Report 4517296-8 (Version None)
Quarter: 2004Q4

REPORT INFORMATION
  Report Type: 
  Country: None (occurrence: None)
  Receive Date: 20041005
  Receipt Date: 20040816
  Transmission Date: 20050328
  Serious: No
  Sender: FDA-Public Use
  Company Number: SU-2004-002609

PATIENT
  Age: 37 Year
  Sex: Female
  Weight: 108.8633 kg

DRUGS (3)
  1. BENICAR HCT [Suspect]
     Indication: HYPERTENSION
     Dosage: 20.125 MG QD PO
     Route: 048
     Dates: start: 20040628
  2. LISINOPRIL AND HYDROCHLOROTHIAZIDE [Suspect]
     Indication: HYPERTENSION
     Dosage: 10.125 MG QD PO
     Route: 048
     Dates: start: 20040609, end: 20040628
  3. CARDIZEM CD [Concomitant]

REACTIONS (1)
  - COUGH [None]
